FAERS Safety Report 24085670 (Version 4)
Quarter: 2025Q3

REPORT INFORMATION
  Report Type: Spontaneous
  Country: JP (occurrence: JP)
  Receive Date: 20240712
  Receipt Date: 20250810
  Transmission Date: 20251021
  Serious: Yes (Life-Threatening, Hospitalization, Other)
  Sender: ALEXION PHARMACEUTICALS
  Company Number: 2024A154889

PATIENT
  Age: 83 Year
  Sex: Male
  Weight: 52 kg

DRUGS (3)
  1. DAPAGLIFLOZIN [Suspect]
     Active Substance: DAPAGLIFLOZIN
     Dosage: 10 MILLIGRAM, QD
  2. METFORMIN HYDROCHLORIDE [Suspect]
     Active Substance: METFORMIN HYDROCHLORIDE
     Indication: Type 2 diabetes mellitus
     Dosage: 500 MILLIGRAM, QD
  3. VOGLIBOSE [Concomitant]
     Active Substance: VOGLIBOSE
     Indication: Type 2 diabetes mellitus
     Dosage: 0.3 MILLIGRAM, TID

REACTIONS (6)
  - Acute kidney injury [Unknown]
  - Ketoacidosis [Recovered/Resolved]
  - Pneumonia [Recovered/Resolved]
  - Dehydration [Recovered/Resolved]
  - Performance status decreased [Not Recovered/Not Resolved]
  - Decreased appetite [Recovering/Resolving]

NARRATIVE: CASE EVENT DATE: 20240620
